FAERS Safety Report 22121074 (Version 3)
Quarter: 2023Q4

REPORT INFORMATION
  Report Type: Report from Study
  Country: CH (occurrence: CH)
  Receive Date: 20230321
  Receipt Date: 20231117
  Transmission Date: 20240110
  Serious: No
  Sender: FDA-Public Use
  Company Number: CH-002147023-NVSC2023CH061695

PATIENT
  Age: 33 Year
  Sex: Female

DRUGS (3)
  1. KESIMPTA [Suspect]
     Active Substance: OFATUMUMAB
     Indication: Multiple sclerosis
     Dosage: 20 MG, QMO (20 MG/0.4 ML)
     Route: 058
     Dates: start: 20220615
  2. KESIMPTA [Suspect]
     Active Substance: OFATUMUMAB
     Dosage: (11TH INJECTION)
     Route: 065
     Dates: start: 20230125
  3. KESIMPTA [Suspect]
     Active Substance: OFATUMUMAB
     Dosage: (12 INJECTION)
     Route: 065
     Dates: start: 20230222

REACTIONS (22)
  - Injection site reaction [Recovered/Resolved]
  - Rash [Recovered/Resolved]
  - Asthenia [Recovered/Resolved]
  - Injection site pruritus [Recovered/Resolved]
  - Injection site swelling [Recovered/Resolved]
  - Injection site pain [Recovered/Resolved]
  - Tachycardia [Recovered/Resolved]
  - Hypotension [Recovered/Resolved]
  - Palpitations [Recovered/Resolved]
  - Dizziness [Recovered/Resolved]
  - Influenza like illness [Recovered/Resolved]
  - Injection site induration [Recovered/Resolved]
  - Vertigo [Recovered/Resolved]
  - Injection site reaction [Recovered/Resolved]
  - Rash [Recovered/Resolved]
  - Asthenia [Recovered/Resolved]
  - Injection site pruritus [Recovered/Resolved]
  - Injection site swelling [Recovered/Resolved]
  - Tachycardia [Recovered/Resolved]
  - Hypotension [Recovered/Resolved]
  - Dizziness [Recovered/Resolved]
  - Injection site pain [Recovered/Resolved]

NARRATIVE: CASE EVENT DATE: 20230125
